FAERS Safety Report 8581847-7 (Version None)
Quarter: 2012Q3

REPORT INFORMATION
  Report Type: 
  Country: None (occurrence: None)
  Receive Date: 20120809
  Receipt Date: 20120731
  Transmission Date: 20120928
  Serious: Yes (Hospitalization)
  Sender: FDA-Public Use
  Company Number: US-JNJFOC-20120803020

PATIENT
  Age: 91 Year
  Sex: Male
  Weight: 85.28 kg

DRUGS (2)
  1. LIPITOR [Concomitant]
     Indication: BLOOD CHOLESTEROL
     Route: 065
     Dates: start: 20120101
  2. POLYSPORIN OINTMENT [Suspect]
     Indication: EPISTAXIS
     Dosage: ON LITTLE FINGER INTO NOSTRIL
     Route: 045
     Dates: start: 20120628, end: 20120628

REACTIONS (3)
  - EPISTAXIS [None]
  - OFF LABEL USE [None]
  - INCORRECT ROUTE OF DRUG ADMINISTRATION [None]
